FAERS Safety Report 7483565-5 (Version None)
Quarter: 2011Q2

REPORT INFORMATION
  Report Type: 
  Country: None (occurrence: None)
  Receive Date: 20110517
  Receipt Date: 20110512
  Transmission Date: 20111010
  Serious: No
  Sender: FDA-Public Use
  Company Number: US-PFIZER INC-2011102510

PATIENT
  Age: 63 Year
  Sex: Male
  Weight: 131.5 kg

DRUGS (12)
  1. MUPIROCIN [Concomitant]
     Dosage: 2 %, UNK
  2. ANDROGEL [Concomitant]
     Dosage: 1 % (2.5 G), 1X/DAY
  3. ZYVOX [Suspect]
     Indication: WOUND INFECTION STAPHYLOCOCCAL
     Dosage: 600 MG, 2X/DAY
     Route: 048
  4. ALBUTEROL SULFATE [Concomitant]
     Dosage: 90 UG, 4X/DAY AS NEEDED
  5. THEOCHRON [Concomitant]
     Dosage: 200 MG, 1X/DAY
  6. ZYVOX [Suspect]
     Dosage: 600 MG, 2X/DAY
     Route: 048
  7. HYDROCHLOROTHIAZIDE [Concomitant]
     Dosage: 25 MG, 1X/DAY
  8. ALLOPURINOL [Concomitant]
     Dosage: 300 MG, 1X/DAY
  9. FLOVENT [Concomitant]
     Dosage: 220 UG, 2X/DAY
  10. LOTENSIN [Concomitant]
     Dosage: 20 MG, 1X/DAY
  11. SIMVASTATIN [Concomitant]
     Dosage: 20 MG, EVERY DAY AFTER NOON TIME
  12. MONTELUKAST SODIUM [Concomitant]
     Dosage: 10 MG, 1X/DAY

REACTIONS (1)
  - PENILE SIZE REDUCED [None]
